FAERS Safety Report 5692275-6 (Version None)
Quarter: 2008Q2

REPORT INFORMATION
  Report Type: 
  Country: None (occurrence: None)
  Receive Date: 20080402
  Receipt Date: 20080324
  Transmission Date: 20081010
  Serious: Yes (Hospitalization, Other)
  Sender: FDA-Public Use
  Company Number: JP-PFIZER INC-2008026942

PATIENT
  Age: 78 Year
  Sex: Male

DRUGS (10)
  1. EPLERENONE [Suspect]
     Indication: HYPERTENSION
     Dosage: DAILY DOSE:50MG
     Route: 048
     Dates: start: 20080317, end: 20080324
  2. CONIEL [Concomitant]
     Indication: HYPERTENSION
     Route: 048
  3. OLMESARTAN MEDOXOMIL [Concomitant]
     Indication: HYPERTENSION
     Dosage: DAILY DOSE:20MG
     Route: 048
  4. MITIGLINIDE [Concomitant]
     Route: 048
  5. BASEN [Concomitant]
     Route: 048
  6. MELBIN [Concomitant]
     Route: 048
  7. FLUITRAN [Concomitant]
     Indication: HYPERTENSION
     Route: 048
  8. IBUPROFEN [Concomitant]
     Indication: NASOPHARYNGITIS
     Route: 048
  9. OZEX [Concomitant]
     Indication: NASOPHARYNGITIS
     Route: 048
  10. MARZULENE S [Concomitant]
     Indication: NASOPHARYNGITIS
     Route: 048

REACTIONS (3)
  - BUNDLE BRANCH BLOCK RIGHT [None]
  - MYOCARDIAL INFARCTION [None]
  - SHOCK [None]
